FAERS Safety Report 7035569-4 (Version None)
Quarter: 2010Q4

REPORT INFORMATION
  Report Type: 
  Country: None (occurrence: None)
  Receive Date: 20101008
  Receipt Date: 20100930
  Transmission Date: 20110411
  Serious: Yes (Hospitalization, Other)
  Sender: FDA-Public Use
  Company Number: US-ABBOTT-10P-163-0675831-00

PATIENT
  Sex: Male
  Weight: 79.45 kg

DRUGS (14)
  1. HUMIRA [Suspect]
     Indication: RHEUMATOID ARTHRITIS
     Route: 058
     Dates: start: 20060101, end: 20090101
  2. HUMIRA [Suspect]
     Route: 058
     Dates: start: 20090101
  3. PLAVIX [Concomitant]
     Indication: STENT PLACEMENT
  4. METOPROLOL TARTRATE [Concomitant]
     Indication: HYPERTENSION
  5. FUROSEMIDE [Concomitant]
     Indication: HYPERTENSION
  6. FEXOFENADINE HCL [Concomitant]
     Indication: HYPERSENSITIVITY
  7. PANTOPRAZOLE SODIUM [Concomitant]
     Indication: PRODUCT USED FOR UNKNOWN INDICATION
  8. LISINOPRIL [Concomitant]
     Indication: HYPERTENSION
  9. PREDNISONE [Concomitant]
     Indication: RHEUMATOID ARTHRITIS
  10. SIMVASTATIN [Concomitant]
     Indication: BLOOD CHOLESTEROL INCREASED
  11. BACLOFEN [Concomitant]
     Indication: PRODUCT USED FOR UNKNOWN INDICATION
  12. ZETIA [Concomitant]
     Indication: BLOOD CHOLESTEROL INCREASED
  13. PERCOCET [Concomitant]
     Indication: PRODUCT USED FOR UNKNOWN INDICATION
  14. LIDOCAINE [Concomitant]
     Indication: PRODUCT USED FOR UNKNOWN INDICATION
     Dosage: PATCH ON BACK DAILY

REACTIONS (12)
  - ARTHRALGIA [None]
  - BURNING SENSATION [None]
  - CHEST PAIN [None]
  - DYSPNOEA [None]
  - FALL [None]
  - INCORRECT DOSE ADMINISTERED [None]
  - INJECTION SITE EXTRAVASATION [None]
  - MYOCARDIAL INFARCTION [None]
  - PAIN IN EXTREMITY [None]
  - POOR QUALITY DRUG ADMINISTERED [None]
  - PRODUCT COLOUR ISSUE [None]
  - SPINAL FRACTURE [None]
